FAERS Safety Report 5970662-6 (Version None)
Quarter: 2008Q4

REPORT INFORMATION
  Report Type: 
  Country: None (occurrence: None)
  Receive Date: 20081126
  Receipt Date: 20081103
  Transmission Date: 20090506
  Serious: No
  Sender: FDA-Public Use
  Company Number: US-ABBOTT-08P-163-0485910-00

PATIENT
  Sex: Female

DRUGS (7)
  1. SIMCOR [Suspect]
     Indication: BLOOD TRIGLYCERIDES INCREASED
     Dosage: 500MG/20MG EVERY NIGHT
     Dates: start: 20081013
  2. SIMCOR [Suspect]
     Indication: HIGH DENSITY LIPOPROTEIN DECREASED
  3. 4 DIFFERENT MEDICATIONS FOR BLOOD PRESSURE [Concomitant]
     Indication: BLOOD PRESSURE
  4. ZOLPIDEM TARTRATE [Concomitant]
     Indication: DRUG USE FOR UNKNOWN INDICATION
  5. ACETYLSALICYLIC ACID SRT [Concomitant]
     Indication: DRUG USE FOR UNKNOWN INDICATION
     Dosage: 3 PILLS
  6. ACETYLSALICYLIC ACID SRT [Concomitant]
     Dosage: 2 PILLS
  7. ACETYLSALICYLIC ACID SRT [Concomitant]
     Dosage: 1 PILL

REACTIONS (5)
  - FALL [None]
  - FLUSHING [None]
  - HOT FLUSH [None]
  - NECK PAIN [None]
  - OEDEMA PERIPHERAL [None]
